FAERS Safety Report 9251002 (Version 8)
Quarter: 2014Q2

REPORT INFORMATION
  Report Type: Spontaneous
  Country: US (occurrence: US)
  Receive Date: 20130424
  Receipt Date: 20140612
  Transmission Date: 20141212
  Serious: Yes (Hospitalization, Disabling, Other)
  Sender: FDA-Public Use
  Company Number: US-ASTRAZENECA-2013SE27212

PATIENT
  Age: 58 Year
  Sex: Female

DRUGS (65)
  1. NEXIUM [Suspect]
     Indication: GASTROOESOPHAGEAL REFLUX DISEASE
     Route: 048
  2. NEXIUM [Suspect]
     Indication: DYSPEPSIA
     Route: 048
  3. NEXIUM [Suspect]
     Indication: GASTROOESOPHAGEAL REFLUX DISEASE
     Route: 048
  4. NEXIUM [Suspect]
     Indication: DYSPEPSIA
     Route: 048
  5. NEXIUM [Suspect]
     Indication: GASTROOESOPHAGEAL REFLUX DISEASE
     Dosage: 20-40 ONCE DAILY
     Route: 048
     Dates: start: 1980
  6. NEXIUM [Suspect]
     Indication: DYSPEPSIA
     Dosage: 20-40 ONCE DAILY
     Route: 048
     Dates: start: 1980
  7. NEXIUM [Suspect]
     Indication: GASTROOESOPHAGEAL REFLUX DISEASE
     Dosage: 20-40 ONCE DAILY
     Route: 048
     Dates: start: 1980
  8. NEXIUM [Suspect]
     Indication: DYSPEPSIA
     Dosage: 20-40 ONCE DAILY
     Route: 048
     Dates: start: 1980
  9. NEXIUM [Suspect]
     Indication: GASTROOESOPHAGEAL REFLUX DISEASE
     Route: 048
     Dates: start: 20051104
  10. NEXIUM [Suspect]
     Indication: DYSPEPSIA
     Route: 048
     Dates: start: 20051104
  11. NEXIUM [Suspect]
     Indication: GASTROOESOPHAGEAL REFLUX DISEASE
     Route: 048
     Dates: start: 20051104
  12. NEXIUM [Suspect]
     Indication: DYSPEPSIA
     Route: 048
     Dates: start: 20051104
  13. NEXIUM [Suspect]
     Indication: GASTROOESOPHAGEAL REFLUX DISEASE
     Route: 048
     Dates: start: 20051104
  14. NEXIUM [Suspect]
     Indication: DYSPEPSIA
     Route: 048
     Dates: start: 20051104
  15. NEXIUM [Suspect]
     Indication: GASTROOESOPHAGEAL REFLUX DISEASE
     Route: 048
     Dates: start: 20051104
  16. NEXIUM [Suspect]
     Indication: DYSPEPSIA
     Route: 048
     Dates: start: 20051104
  17. NEXIUM [Suspect]
     Indication: GASTROOESOPHAGEAL REFLUX DISEASE
     Route: 048
     Dates: start: 20080902
  18. NEXIUM [Suspect]
     Indication: DYSPEPSIA
     Route: 048
     Dates: start: 20080902
  19. NEXIUM [Suspect]
     Indication: GASTROOESOPHAGEAL REFLUX DISEASE
     Route: 048
     Dates: start: 20080902
  20. NEXIUM [Suspect]
     Indication: DYSPEPSIA
     Route: 048
     Dates: start: 20080902
  21. NEXIUM [Suspect]
     Indication: GASTROOESOPHAGEAL REFLUX DISEASE
     Route: 048
     Dates: start: 20080130
  22. NEXIUM [Suspect]
     Indication: DYSPEPSIA
     Route: 048
     Dates: start: 20080130
  23. NEXIUM [Suspect]
     Indication: GASTROOESOPHAGEAL REFLUX DISEASE
     Route: 048
     Dates: start: 20080130
  24. NEXIUM [Suspect]
     Indication: DYSPEPSIA
     Route: 048
     Dates: start: 20080130
  25. NEXIUM [Suspect]
     Indication: GASTROOESOPHAGEAL REFLUX DISEASE
     Route: 048
     Dates: start: 20101230
  26. NEXIUM [Suspect]
     Indication: DYSPEPSIA
     Route: 048
     Dates: start: 20101230
  27. NEXIUM [Suspect]
     Indication: GASTROOESOPHAGEAL REFLUX DISEASE
     Route: 048
     Dates: start: 20101230
  28. NEXIUM [Suspect]
     Indication: DYSPEPSIA
     Route: 048
     Dates: start: 20101230
  29. OMEPRAZOLE [Suspect]
     Indication: GASTROOESOPHAGEAL REFLUX DISEASE
     Route: 048
     Dates: start: 2008
  30. OMEPRAZOLE [Suspect]
     Indication: GASTROOESOPHAGEAL REFLUX DISEASE
     Route: 048
     Dates: start: 20111003
  31. OMEPRAZOLE [Suspect]
     Indication: GASTROOESOPHAGEAL REFLUX DISEASE
     Route: 048
     Dates: start: 20131221
  32. TUMS [Concomitant]
     Dosage: PRN 2-8 PER WEEK
  33. ALKA-SELTZER [Concomitant]
  34. CYMBALTA [Concomitant]
     Indication: PAIN
  35. CYMBALTA [Concomitant]
     Indication: DEPRESSION
  36. CLONAZEPAM [Concomitant]
     Indication: SLEEP DISORDER
  37. VITAMIN D3 [Concomitant]
     Indication: VITAMIN D DEFICIENCY
  38. FISH OIL [Concomitant]
     Indication: BONE DISORDER
  39. FISH OIL [Concomitant]
     Indication: ARTHROPATHY
  40. CALCIUM [Concomitant]
     Indication: BONE DISORDER
  41. MULTIVITAMIN [Concomitant]
     Indication: ROUTINE HEALTH MAINTENANCE
  42. PROBIOTIC [Concomitant]
     Indication: GASTROINTESTINAL DISORDER
  43. RANITIDINE HCL [Concomitant]
     Dates: start: 20050628
  44. PROGESTERON [Concomitant]
     Dates: start: 20050714
  45. PROGESTERON [Concomitant]
     Dates: start: 200710
  46. ESTRIOL [Concomitant]
     Dates: start: 20050714
  47. LUNESTA [Concomitant]
     Dates: start: 20050925
  48. ESTRADIOL [Concomitant]
     Dates: start: 20051026
  49. TESTOSTERONE [Concomitant]
     Dosage: 3.5 2 MG
     Dates: start: 200706
  50. CELEBREX [Concomitant]
  51. EFFEXOR [Concomitant]
  52. PAROXETINE HCL [Concomitant]
     Dates: start: 20110612
  53. PAROXETINE HCL [Concomitant]
  54. NORCO [Concomitant]
     Indication: PAIN
     Dosage: 5/325 MG
     Dates: start: 20110930
  55. PERCOCET [Concomitant]
     Dosage: 5/325
     Dates: start: 20110929
  56. OXYCONTIN [Concomitant]
     Indication: PAIN
     Route: 048
     Dates: start: 20110929
  57. XANAX [Concomitant]
     Indication: SLEEP DISORDER
  58. ZOLOFT [Concomitant]
     Dates: start: 20050531
  59. LORAZEPAM [Concomitant]
     Dates: start: 20051103
  60. LYRICA [Concomitant]
     Dates: start: 20110612
  61. MS CONTIN [Concomitant]
  62. ZOFRAN [Concomitant]
  63. FENTANYL [Concomitant]
  64. VERSED [Concomitant]
  65. ADVIL [Concomitant]

REACTIONS (26)
  - Cervical vertebral fracture [Unknown]
  - Ankle fracture [Unknown]
  - Back pain [Unknown]
  - Intervertebral disc disorder [Unknown]
  - Nerve injury [Unknown]
  - Neuropathy peripheral [Unknown]
  - Spinal fusion acquired [Unknown]
  - Lumbar radiculopathy [Unknown]
  - Lumbar spinal stenosis [Unknown]
  - Exostosis [Unknown]
  - Vertebral foraminal stenosis [Unknown]
  - Osteoporosis [Unknown]
  - Bone disorder [Unknown]
  - Osteoarthritis [Unknown]
  - Calcium deficiency [Unknown]
  - Carpal tunnel syndrome [Unknown]
  - Fall [Unknown]
  - Fibula fracture [Unknown]
  - Intervertebral disc degeneration [Unknown]
  - Spinal osteoarthritis [Unknown]
  - Tibia fracture [Unknown]
  - Vitamin D deficiency [Unknown]
  - Intervertebral disc protrusion [Unknown]
  - Arthropathy [Unknown]
  - Joint injury [Unknown]
  - Depression [Unknown]
